FAERS Safety Report 14951613 (Version 1)
Quarter: 2018Q2

REPORT INFORMATION
  Report Type: Other
  Country: CA (occurrence: CA)
  Receive Date: 20180530
  Receipt Date: 20180530
  Transmission Date: 20180711
  Serious: Yes (Other)
  Sender: FDA-Public Use
  Company Number: CA-APOTEX-2018AP014021

PATIENT
  Age: 57 Year
  Sex: Female

DRUGS (4)
  1. REMICADE [Suspect]
     Active Substance: INFLIXIMAB
     Indication: RHEUMATOID ARTHRITIS
     Dosage: 300 MG, ONCE EVERY EIGHT WEEKS
     Route: 042
  2. MOXIFLOXACIN. [Suspect]
     Active Substance: MOXIFLOXACIN
     Indication: LOWER RESPIRATORY TRACT INFECTION
     Dosage: 400 MG, QD
     Route: 065
  3. REMICADE [Suspect]
     Active Substance: INFLIXIMAB
     Indication: COLITIS ULCERATIVE
     Dosage: 500 MG, ONCE EVERY SIX WEEKS
     Route: 042
  4. MOXIFLOXACIN. [Suspect]
     Active Substance: MOXIFLOXACIN
     Indication: INFECTION

REACTIONS (6)
  - Multiple allergies [Unknown]
  - Oral mucosal blistering [Unknown]
  - Colitis ulcerative [Unknown]
  - Stress [Unknown]
  - Infection [Unknown]
  - Lower respiratory tract infection [Unknown]
